FAERS Safety Report 17641239 (Version 2)
Quarter: 2020Q2

REPORT INFORMATION
  Report Type: Report from Study
  Country: CA (occurrence: CA)
  Receive Date: 20200408
  Receipt Date: 20200612
  Transmission Date: 20200713
  Serious: Yes (Other)
  Sender: FDA-Public Use
  Company Number: CA-ROCHE-2369891

PATIENT
  Age: 63 Year
  Sex: Male

DRUGS (13)
  1. ATORVASTATIN [Concomitant]
     Active Substance: ATORVASTATIN
  2. D-TABS [Concomitant]
     Active Substance: CHOLECALCIFEROL
  3. RITUXAN [Suspect]
     Active Substance: RITUXIMAB
     Indication: ANTI-NEUTROPHIL CYTOPLASMIC ANTIBODY POSITIVE VASCULITIS
     Dosage: DAY 1, DAY 15. NO PIRS AVAILABLE
     Route: 042
     Dates: start: 20180604, end: 20180618
  4. AZATHIOPRINE. [Concomitant]
     Active Substance: AZATHIOPRINE
  5. CANDESARTAN. [Concomitant]
     Active Substance: CANDESARTAN
  6. PREDNISONE. [Concomitant]
     Active Substance: PREDNISONE
  7. BENADRYL [Concomitant]
     Active Substance: DIPHENHYDRAMINE HYDROCHLORIDE
     Indication: PREMEDICATION
     Route: 048
     Dates: start: 20181214
  8. TYLENOL [Concomitant]
     Active Substance: ACETAMINOPHEN
     Indication: PREMEDICATION
     Route: 048
     Dates: start: 20181214
  9. IMURAN [Concomitant]
     Active Substance: AZATHIOPRINE
     Dosage: SINCE 29/MAR/2016
     Route: 065
  10. RITUXAN [Suspect]
     Active Substance: RITUXIMAB
     Route: 042
     Dates: start: 20181214
  11. PANTOLOC [PANTOPRAZOLE] [Concomitant]
     Active Substance: PANTOPRAZOLE SODIUM
  12. TAMSULOSIN CR [Concomitant]
     Active Substance: TAMSULOSIN
  13. SOLU-MEDROL [Concomitant]
     Active Substance: METHYLPREDNISOLONE SODIUM SUCCINATE
     Indication: PREMEDICATION
     Route: 042
     Dates: start: 20181214

REACTIONS (19)
  - Renal failure [Not Recovered/Not Resolved]
  - Urinary sediment present [Not Recovered/Not Resolved]
  - Red blood cell count decreased [Unknown]
  - Blood pressure fluctuation [Unknown]
  - Dry skin [Not Recovered/Not Resolved]
  - Blood uric acid increased [Unknown]
  - Urine albumin/creatinine ratio increased [Unknown]
  - Haematuria [Not Recovered/Not Resolved]
  - Blood pressure systolic increased [Unknown]
  - Hypotension [Not Recovered/Not Resolved]
  - Arthralgia [Not Recovered/Not Resolved]
  - Immunosuppression [Unknown]
  - Lymphocyte count decreased [Unknown]
  - Blood creatinine increased [Unknown]
  - Blood urea increased [Unknown]
  - Basal cell carcinoma [Not Recovered/Not Resolved]
  - Blood calcium decreased [Unknown]
  - Eosinophil count increased [Unknown]
  - Protein urine present [Unknown]

NARRATIVE: CASE EVENT DATE: 20200320
